FAERS Safety Report 18285973 (Version 2)
Quarter: 2020Q4

REPORT INFORMATION
  Report Type: Spontaneous
  Country: JP (occurrence: JP)
  Receive Date: 20200919
  Receipt Date: 20201006
  Transmission Date: 20210113
  Serious: Yes (Hospitalization)
  Sender: FDA-Public Use
  Company Number: JP-AMGEN-JPNSP2020151863

PATIENT
  Age: 9 Decade
  Sex: Male

DRUGS (4)
  1. AMRUBICIN HYDROCHLORIDE [Concomitant]
     Active Substance: AMRUBICIN HYDROCHLORIDE
     Indication: SMALL CELL LUNG CANCER
     Dosage: UNK
     Route: 042
     Dates: start: 20200901, end: 20200903
  2. G-LASTA [Suspect]
     Active Substance: PEGFILGRASTIM
     Indication: COLONY STIMULATING FACTOR THERAPY
     Dosage: 3.6 UNK  *SINGLE
     Route: 058
     Dates: start: 20200904, end: 20200904
  3. G-LASTA [Suspect]
     Active Substance: PEGFILGRASTIM
     Indication: COLONY STIMULATING FACTOR THERAPY
     Dosage: 3.6 MG
     Route: 058
     Dates: start: 20200904, end: 20200904
  4. AMRUBICIN HYDROCHLORIDE [Concomitant]
     Active Substance: AMRUBICIN HYDROCHLORIDE
     Indication: SMALL CELL LUNG CANCER
     Dosage: 60 MILLIGRAM  *SINGLE
     Route: 042
     Dates: start: 20200901, end: 20200903

REACTIONS (3)
  - Pancytopenia [Recovered/Resolved]
  - Febrile neutropenia [Recovered/Resolved]
  - Sepsis [Recovered/Resolved]

NARRATIVE: CASE EVENT DATE: 20200909
